FAERS Safety Report 4432464-1 (Version None)
Quarter: 2004Q3

REPORT INFORMATION
  Report Type: 
  Country: None (occurrence: None)
  Receive Date: 20040825
  Receipt Date: 20040618
  Transmission Date: 20050211
  Serious: Yes (Hospitalization)
  Sender: FDA-Public Use
  Company Number: US-BRISTOL-MYERS SQUIBB COMPANY-12620514

PATIENT
  Age: 57 Year
  Sex: Female

DRUGS (16)
  1. ERBITUX [Suspect]
     Indication: CARCINOMA
     Route: 042
     Dates: start: 20040408, end: 20040408
  2. CISPLATIN [Concomitant]
     Indication: CARCINOMA
  3. GEMZAR [Concomitant]
     Indication: CARCINOMA
  4. ACIPHEX [Concomitant]
  5. ATIVAN [Concomitant]
  6. BENADRYL [Concomitant]
  7. BENTYL [Concomitant]
  8. COMPAZINE [Concomitant]
  9. DEXAMETHASONE [Concomitant]
  10. DILAUDID [Concomitant]
  11. MAALOX [Concomitant]
  12. VITAMIN B6 [Concomitant]
  13. ZOFRAN [Concomitant]
  14. VICODIN [Concomitant]
  15. PYRIDOXINE [Concomitant]
  16. IRINOTECAN [Concomitant]
     Dates: end: 20040401

REACTIONS (7)
  - COLITIS ULCERATIVE [None]
  - CONDITION AGGRAVATED [None]
  - DERMATITIS ACNEIFORM [None]
  - DRUG TOXICITY [None]
  - GASTROINTESTINAL DISORDER [None]
  - RASH [None]
  - SKIN ULCER [None]
